FAERS Safety Report 18532271 (Version 1)
Quarter: 2020Q4

REPORT INFORMATION
  Report Type: Spontaneous
  Country: DE (occurrence: DE)
  Receive Date: 20201123
  Receipt Date: 20201123
  Transmission Date: 20210114
  Serious: Yes (Hospitalization)
  Sender: FDA-Public Use
  Company Number: DE-TEVA-2020-DE-1850647

PATIENT
  Age: 77 Year
  Sex: Female
  Weight: 99 kg

DRUGS (15)
  1. QUETIAPIN [Suspect]
     Active Substance: QUETIAPINE
     Dosage: 100 MILLIGRAM DAILY; 0-0-0-1
  2. INSULIN LISPRO [Concomitant]
     Active Substance: INSULIN LISPRO
     Dosage: ACCORDING TO SCHEME
  3. IBUPROFEN. [Concomitant]
     Active Substance: IBUPROFEN
     Dosage: 1800 MILLIGRAM DAILY; 1-1-1-0
  4. PREGABALIN. [Suspect]
     Active Substance: PREGABALIN
     Dosage: 150 MILLIGRAM DAILY; 1-1-1-0
  5. MIRTAZAPIN [Suspect]
     Active Substance: MIRTAZAPINE
     Dosage: 45 MILLIGRAM DAILY;  0-0-0-1
  6. BUDESONID [Concomitant]
     Active Substance: BUDESONIDE
     Dosage: 400 MICROGRAM DAILY;  1-0-0-0
  7. LORAZEPAM. [Suspect]
     Active Substance: LORAZEPAM
     Dosage: 2 DOSAGE FORMS DAILY; 0.5 MG, 0.5-0.5-0.5-0.5
  8. BISOPROLOL [Concomitant]
     Active Substance: BISOPROLOL
     Dosage: 10 MILLIGRAM DAILY; 1-0-1-0
  9. PANTOPRAZOL [Concomitant]
     Active Substance: PANTOPRAZOLE SODIUM
     Dosage: 20 MILLIGRAM DAILY; 1-0-0-0
  10. TILIDINE/NALOXONE [Suspect]
     Active Substance: NALOXONE HYDROCHLORIDE\TILIDINE HYDROCHLORIDE
     Dosage: 4|50 MG, 2-0-1-0
  11. PIPAMPERON [Suspect]
     Active Substance: PIPAMPERONE HYDROCHLORIDE
     Dosage: 20 MG, 1-1-0-2
  12. LERCANIDIPIN [Concomitant]
     Active Substance: LERCANIDIPINE
     Dosage: 40 MILLIGRAM DAILY;  1-0-1-0
  13. HYDROCHLOROTHIAZID [Concomitant]
     Active Substance: HYDROCHLOROTHIAZIDE
     Dosage: 25 MILLIGRAM DAILY; 1-0-0-0
  14. PANTOPRAZOL [Concomitant]
     Active Substance: PANTOPRAZOLE SODIUM
     Dosage: 20 MG, 1-0-0-0
  15. INSULIN DETEMIR [Concomitant]
     Active Substance: INSULIN DETEMIR
     Dosage: 20 IU (INTERNATIONAL UNIT) DAILY;  0-0-0-1

REACTIONS (3)
  - General physical health deterioration [Unknown]
  - Fall [Unknown]
  - Wound [Unknown]
